FAERS Safety Report 19398248 (Version 1)
Quarter: 2021Q2

REPORT INFORMATION
  Report Type: Spontaneous
  Country: US (occurrence: US)
  Receive Date: 20210609
  Receipt Date: 20210609
  Transmission Date: 20210717
  Serious: Yes (Disabling)
  Sender: FDA-Public Use
  Company Number: None

PATIENT
  Age: 65 Year
  Sex: Male
  Weight: 90 kg

DRUGS (4)
  1. NSAID [Concomitant]
     Active Substance: UNSPECIFIED INGREDIENT
  2. ASPIRIN LOW DOSE [Concomitant]
     Active Substance: ASPIRIN
  3. VITAMIN C [Concomitant]
     Active Substance: ASCORBIC ACID
  4. VIIBRYD [Suspect]
     Active Substance: VILAZODONE HYDROCHLORIDE
     Indication: DEPRESSION
     Dosage: ?          QUANTITY:1 TABLET(S);?
     Route: 048

REACTIONS (6)
  - Rash [None]
  - Product label issue [None]
  - Rosacea [None]
  - Urticaria [None]
  - Erythema [None]
  - Skin disorder [None]

NARRATIVE: CASE EVENT DATE: 20210521
